FAERS Safety Report 9928866 (Version 2)
Quarter: 2014Q1

REPORT INFORMATION
  Report Type: Spontaneous
  Country: JP (occurrence: JP)
  Receive Date: 20140227
  Receipt Date: 20140306
  Transmission Date: 20141002
  Serious: Yes (Other)
  Sender: FDA-Public Use
  Company Number: JP-ASTRAZENECA-2014SE12029

PATIENT
  Age: 79 Year
  Sex: 0

DRUGS (1)
  1. CRESTOR [Suspect]
     Dosage: DOSE UNKNOWN
     Route: 048

REACTIONS (3)
  - Spinal X-ray abnormal [Unknown]
  - Myalgia [Unknown]
  - Hypoaesthesia [Unknown]
